FAERS Safety Report 8284735-9 (Version None)
Quarter: 2012Q2

REPORT INFORMATION
  Report Type: 
  Country: None (occurrence: None)
  Receive Date: 20120413
  Receipt Date: 20110601
  Transmission Date: 20120825
  Serious: No
  Sender: FDA-Public Use
  Company Number: US-ASTRAZENECA-2011SE33945

PATIENT
  Sex: Female

DRUGS (3)
  1. NAPROSYN [Concomitant]
  2. VIMOVO [Suspect]
     Route: 048
  3. NEXIUM [Suspect]
     Route: 048

REACTIONS (4)
  - ARTHROPATHY [None]
  - CONSTIPATION [None]
  - FALL [None]
  - JOINT INJURY [None]
